FAERS Safety Report 25590193 (Version 1)
Quarter: 2025Q3

REPORT INFORMATION
  Report Type: Spontaneous
  Country: EU (occurrence: EU)
  Receive Date: 20250722
  Receipt Date: 20250722
  Transmission Date: 20251020
  Serious: Yes (Hospitalization, Other)
  Sender: AUROBINDO
  Company Number: EU-AFSSAPS-LL2025001245

PATIENT
  Age: 85 Year
  Sex: Female
  Weight: 60 kg

DRUGS (1)
  1. DAPTOMYCIN [Suspect]
     Active Substance: DAPTOMYCIN
     Indication: Endocarditis
     Route: 042
     Dates: start: 20250608, end: 20250616

REACTIONS (3)
  - Rhabdomyolysis [Not Recovered/Not Resolved]
  - Hepatic cytolysis [Not Recovered/Not Resolved]
  - Cholestasis [Not Recovered/Not Resolved]

NARRATIVE: CASE EVENT DATE: 20250616
